FAERS Safety Report 22028101 (Version 1)
Quarter: 2023Q1

REPORT INFORMATION
  Report Type: Spontaneous
  Country: US (occurrence: None)
  Receive Date: 20230223
  Receipt Date: 20230223
  Transmission Date: 20230417
  Serious: No
  Sender: FDA-Public Use
  Company Number: US-ROCHE-3085059

PATIENT
  Age: 10 Year
  Sex: Male

DRUGS (3)
  1. NUTROPIN [Suspect]
     Active Substance: SOMATROPIN
     Indication: Hypopituitarism
     Dosage: DAILY
     Route: 058
     Dates: start: 202203, end: 20220422
  2. NUTROPIN [Suspect]
     Active Substance: SOMATROPIN
  3. NORDITROPIN [Concomitant]
     Active Substance: SOMATROPIN

REACTIONS (1)
  - Injection site pain [Unknown]

NARRATIVE: CASE EVENT DATE: 20220425
